FAERS Safety Report 7108064-1 (Version None)
Quarter: 2010Q4

REPORT INFORMATION
  Report Type: 
  Country: None (occurrence: None)
  Receive Date: 20101109
  Receipt Date: 20101103
  Transmission Date: 20110411
  Serious: Yes (Life-Threatening, Hospitalization, Disabling)
  Sender: FDA-Public Use
  Company Number: 2010SP058377

PATIENT
  Age: 63 Year
  Sex: Male

DRUGS (7)
  1. ASMANEX TWISTHALER [Suspect]
     Indication: CHEST DISCOMFORT
     Dosage: ; INH
     Route: 055
  2. SEREVENT [Suspect]
     Indication: CHEST DISCOMFORT
  3. ACIPHEX [Concomitant]
  4. DIOVAN [Concomitant]
  5. CHLORTHALIDONE [Concomitant]
  6. FLOVENT [Concomitant]
  7. FORADIL [Concomitant]

REACTIONS (7)
  - CARDIAC INFECTION [None]
  - DRUG EFFECT DECREASED [None]
  - HAEMORRHAGE [None]
  - IMPAIRED WORK ABILITY [None]
  - OFF LABEL USE [None]
  - RHINITIS [None]
  - STAPHYLOCOCCAL INFECTION [None]
